FAERS Safety Report 9031136 (Version 1)
Quarter: 2013Q1

REPORT INFORMATION
  Report Type: Report from Study
  Country: US (occurrence: US)
  Receive Date: 20130123
  Receipt Date: 20130123
  Transmission Date: 20140127
  Serious: Yes (Other)
  Sender: FDA-Public Use
  Company Number: US-UCBSA-075575

PATIENT
  Age: 59 Year
  Sex: Male
  Weight: 119.7 kg

DRUGS (3)
  1. CIMZIA [Suspect]
     Indication: CROHN^S DISEASE
     Route: 058
     Dates: start: 20100617
  2. BUDESONIDE [Concomitant]
     Indication: CROHN^S DISEASE
     Dates: start: 2010, end: 2010
  3. BUDESONIDE [Concomitant]
     Indication: CROHN^S DISEASE
     Dates: start: 20110225

REACTIONS (1)
  - Lymphoma [Not Recovered/Not Resolved]
